FAERS Safety Report 25790656 (Version 1)
Quarter: 2025Q3

REPORT INFORMATION
  Report Type: Spontaneous
  Country: EU (occurrence: EU)
  Receive Date: 20250911
  Receipt Date: 20250911
  Transmission Date: 20251020
  Serious: Yes (Hospitalization)
  Sender: RANBAXY
  Company Number: EU-SUN PHARMACEUTICAL INDUSTRIES LTD-2025RR-526173

PATIENT
  Age: 44 Year
  Sex: Female
  Weight: 114 kg

DRUGS (17)
  1. ALLOPURINOL [Suspect]
     Active Substance: ALLOPURINOL
     Indication: Tumour lysis syndrome
     Dosage: 300 MILLIGRAM, DAILY
     Route: 048
     Dates: start: 20241010, end: 20241017
  2. VALACYCLOVIR [Suspect]
     Active Substance: VALACYCLOVIR HYDROCHLORIDE
     Indication: Chemotherapy side effect prophylaxis
     Dosage: 500 MILLIGRAM, BID
     Route: 048
     Dates: start: 20241010
  3. CEFEPIME [Suspect]
     Active Substance: CEFEPIME HYDROCHLORIDE
     Indication: Pneumonia
     Dosage: 2 GRAM, TID
     Route: 040
     Dates: start: 20241010, end: 20241016
  4. LINEZOLID [Suspect]
     Active Substance: LINEZOLID
     Indication: Pneumonia
     Dosage: 600 MILLIGRAM, DAILY
     Route: 048
     Dates: start: 20241012, end: 20241017
  5. DAPTOMYCIN [Suspect]
     Active Substance: DAPTOMYCIN
     Indication: Pneumonia
     Dosage: 800 MILLIGRAM, DAILY
     Route: 040
     Dates: start: 20241010, end: 20241017
  6. IOMERON [Suspect]
     Active Substance: IOMEPROL
     Indication: Computerised tomogram
     Route: 040
     Dates: start: 20241015, end: 20241015
  7. TRISENOX [Concomitant]
     Active Substance: ARSENIC TRIOXIDE
     Indication: Acute promyelocytic leukaemia
     Route: 040
     Dates: start: 20241010
  8. TRETINOIN [Concomitant]
     Active Substance: TRETINOIN
     Indication: Acute promyelocytic leukaemia
     Route: 040
     Dates: start: 20241009
  9. TRAMADOL [Concomitant]
     Active Substance: TRAMADOL
     Indication: Pain
     Dosage: 50 MILLIGRAM, BID
     Route: 048
     Dates: start: 20241010
  10. FUROSEMIDE [Concomitant]
     Active Substance: FUROSEMIDE
     Indication: Cardiac failure
     Dosage: IVSE
     Route: 040
     Dates: start: 20241012
  11. NEFOPAM [Concomitant]
     Active Substance: NEFOPAM
     Indication: Pain
     Dosage: IVSE
     Route: 040
  12. ARIPIPRAZOLE [Concomitant]
     Active Substance: ARIPIPRAZOLE
     Indication: Bipolar II disorder
     Dosage: 15 MILLIGRAM, DAILY
     Route: 048
  13. LOXAPINE [Concomitant]
     Active Substance: LOXAPINE
     Indication: Bipolar II disorder
     Dosage: 25 MILLIGRAM, DAILY
     Route: 048
  14. MIRTAZAPINE [Concomitant]
     Active Substance: MIRTAZAPINE
     Indication: Bipolar II disorder
     Dosage: 15 MILLIGRAM, DAILY
     Route: 048
  15. PAROXETINE HYDROCHLORIDE [Concomitant]
     Active Substance: PAROXETINE HYDROCHLORIDE
     Indication: Bipolar II disorder
     Dosage: 20 MILLIGRAM, DAILY
     Route: 048
  16. VALPROMIDE [Concomitant]
     Active Substance: VALPROMIDE
     Indication: Bipolar II disorder
     Dosage: 300 MILLIGRAM, TID
     Route: 048
  17. DESOGESTREL [Concomitant]
     Active Substance: DESOGESTREL
     Indication: Hormonal contraception
     Dosage: 75 MICROGRAM, DAILY
     Route: 048

REACTIONS (1)
  - Rash maculo-papular [Recovered/Resolved]

NARRATIVE: CASE EVENT DATE: 20241016
